FAERS Safety Report 21143860 (Version 1)
Quarter: 2022Q3

REPORT INFORMATION
  Report Type: Spontaneous
  Country: IT (occurrence: IT)
  Receive Date: 20220728
  Receipt Date: 20220728
  Transmission Date: 20221027
  Serious: Yes (Other)
  Sender: FDA-Public Use
  Company Number: None

PATIENT
  Age: 37 Year
  Sex: Female
  Weight: 55 kg

DRUGS (6)
  1. TALTZ [Suspect]
     Active Substance: IXEKIZUMAB
     Indication: Psoriatic arthropathy
     Dosage: 160 MG, SINGLE
     Route: 058
     Dates: start: 20220203
  2. TALTZ [Suspect]
     Active Substance: IXEKIZUMAB
     Indication: Psoriasis
     Dosage: 80 MG, 2/M
     Route: 058
     Dates: end: 20220318
  3. MEDROL [Concomitant]
     Active Substance: METHYLPREDNISOLONE
     Indication: Psoriasis
     Dosage: 4-8 MG, DAILY
     Route: 065
  4. MEDROL [Concomitant]
     Active Substance: METHYLPREDNISOLONE
     Indication: Psoriatic arthropathy
  5. METHOTREXATE SODIUM [Concomitant]
     Active Substance: METHOTREXATE SODIUM
     Indication: Psoriatic arthropathy
     Dosage: 12 MG, WEEKLY (1/W)
     Route: 048
  6. METHOTREXATE SODIUM [Concomitant]
     Active Substance: METHOTREXATE SODIUM
     Indication: Psoriasis

REACTIONS (1)
  - Eosinophilic colitis [Recovered/Resolved]

NARRATIVE: CASE EVENT DATE: 20220303
